FAERS Safety Report 8520729-3 (Version None)
Quarter: 2012Q3

REPORT INFORMATION
  Report Type: 
  Country: None (occurrence: None)
  Receive Date: 20120719
  Receipt Date: 20120717
  Transmission Date: 20120928
  Serious: Yes (Other)
  Sender: FDA-Public Use
  Company Number: US-PFIZER INC-2012147318

PATIENT
  Sex: Female

DRUGS (3)
  1. ALDACTONE [Suspect]
     Dosage: UNK
  2. LIPITOR [Suspect]
     Dosage: UNK
  3. NEURONTIN [Suspect]
     Dosage: UNK

REACTIONS (5)
  - MYOCARDIAL INFARCTION [None]
  - MASTECTOMY [None]
  - ROAD TRAFFIC ACCIDENT [None]
  - NEOPLASM MALIGNANT [None]
  - JOINT INJURY [None]
